FAERS Safety Report 16617173 (Version 2)
Quarter: 2019Q3

REPORT INFORMATION
  Report Type: Spontaneous
  Country: CZ (occurrence: CZ)
  Receive Date: 20190723
  Receipt Date: 20190729
  Transmission Date: 20191004
  Serious: Yes (Life-Threatening, Hospitalization, Other)
  Sender: FDA-Public Use
  Company Number: CZ-ACCORD-145761

PATIENT
  Sex: Female

DRUGS (4)
  1. CISORDINOL ACUTARD [Suspect]
     Active Substance: ZUCLOPENTHIXOL ACETATE
     Indication: PSYCHOTIC DISORDER
  2. QUETIAPINE. [Suspect]
     Active Substance: QUETIAPINE
     Indication: PSYCHOTIC DISORDER
  3. OLANZAPINE. [Suspect]
     Active Substance: OLANZAPINE
     Indication: PSYCHOTIC DISORDER
     Dosage: INCREASE OF THE OLANZAPINE DOSE AND DRUG WITHDRAWN
  4. OLANZAPINE. [Suspect]
     Active Substance: OLANZAPINE
     Indication: PSYCHOTIC DISORDER
     Dosage: INCREASE OF THE OLANZAPINE DOSE

REACTIONS (3)
  - Respiratory failure [Recovered/Resolved]
  - Galactorrhoea [Recovering/Resolving]
  - Neuroleptic malignant syndrome [Recovering/Resolving]
